FAERS Safety Report 16035004 (Version 1)
Quarter: 2019Q1

REPORT INFORMATION
  Report Type: Spontaneous
  Country: US (occurrence: US)
  Receive Date: 20190206
  Receipt Date: 20190206
  Transmission Date: 20190418
  Serious: No
  Sender: FDA-Public Use
  Company Number: None

PATIENT
  Sex: Female

DRUGS (6)
  1. DRAMAMINE [Suspect]
     Active Substance: DIMENHYDRINATE
  2. GAVILYTE G [Concomitant]
     Active Substance: POLYETHYLENE GLYCOL 3350\POTASSIUM CHLORIDE\SODIUM BICARBONATE\SODIUM CHLORIDE\SODIUM SULFATE ANHYDROUS
  3. OCALIVA [Suspect]
     Active Substance: OBETICHOLIC ACID
     Indication: PRIMARY BILIARY CHOLANGITIS
     Route: 048
     Dates: start: 20171117
  4. OFLOXACIN. [Concomitant]
     Active Substance: OFLOXACIN
  5. URSODIOL. [Concomitant]
     Active Substance: URSODIOL
  6. DOXYCYC MONO [Suspect]
     Active Substance: DOXYCYCLINE

REACTIONS (1)
  - Pruritus [None]
